FAERS Safety Report 6457653-6 (Version None)
Quarter: 2009Q4

REPORT INFORMATION
  Report Type: 
  Country: None (occurrence: None)
  Receive Date: 20091120
  Receipt Date: 20091113
  Transmission Date: 20100525
  Serious: Yes (Hospitalization)
  Sender: FDA-Public Use
  Company Number: 2009SP034976

PATIENT
  Age: 30 Year
  Sex: Female

DRUGS (3)
  1. HUMAN CHORIONIC GONADOTROPHIN [Suspect]
     Indication: INFERTILITY
  2. CHORIONIC GONADTROPIN [Suspect]
     Indication: INFERTILITY
  3. MENOTROPHIN [Concomitant]

REACTIONS (7)
  - ABDOMINAL PAIN LOWER [None]
  - BLIGHTED OVUM [None]
  - DRUG EXPOSURE DURING PREGNANCY [None]
  - ECTOPIC PREGNANCY [None]
  - GENITAL HAEMORRHAGE [None]
  - HAEMATOMA [None]
  - INTRA-ABDOMINAL HAEMORRHAGE [None]
